FAERS Safety Report 8814360 (Version 1)
Quarter: 2012Q4

REPORT INFORMATION
  Report Type: Spontaneous
  Country: US (occurrence: None)
  Receive Date: 20120926
  Receipt Date: 20120926
  Transmission Date: 20130627
  Serious: Yes (Death)
  Sender: FDA-Public Use
  Company Number: UTC-023057

PATIENT
  Age: 28 Year
  Sex: Female
  Weight: 40.45 kg

DRUGS (4)
  1. REMODULIN (5 MILLIGRAM/MILLILITERS, INJECTION FOR [Suspect]
     Indication: PRIMARY PULMONARY HYPERTENSION
     Route: 041
     Dates: start: 20101020
  2. REMODULIN (5 MILLIGRAM/MILLILITERS, INJECTION FOR [Suspect]
     Indication: PRIMARY PULMONARY HYPERTENSION
     Dosage: 91.44 ug/kg (0.0635 ug/kg,  1 in 1 min), intravenous drip
  3. ADCIRCA (TADALAFIL) [Concomitant]
  4. TRACLEER (BOSENTAN) [Concomitant]

REACTIONS (2)
  - Pulseless electrical activity [None]
  - Cardiac arrest [None]
